FAERS Safety Report 16928006 (Version 1)
Quarter: 2019Q4

REPORT INFORMATION
  Report Type: Spontaneous
  Country: MX (occurrence: MX)
  Receive Date: 20191017
  Receipt Date: 20191017
  Transmission Date: 20200122
  Serious: Yes (Other)
  Sender: FDA-Public Use
  Company Number: MX-ROCHE-2441044

PATIENT
  Age: 76 Year
  Sex: Male

DRUGS (1)
  1. ATEZOLIZUMAB. [Suspect]
     Active Substance: ATEZOLIZUMAB
     Indication: NON-SMALL CELL LUNG CANCER
     Route: 042
     Dates: start: 20190410

REACTIONS (10)
  - Haemoptysis [Unknown]
  - Arteriovenous graft thrombosis [Unknown]
  - Diarrhoea [Recovered/Resolved]
  - Blood creatinine increased [Unknown]
  - Haemoglobin decreased [Unknown]
  - Arthralgia [Unknown]
  - Carcinoembryonic antigen increased [Unknown]
  - Myalgia [Unknown]
  - Blood albumin decreased [Unknown]
  - Arteriovenous graft thrombosis [Unknown]

NARRATIVE: CASE EVENT DATE: 20190701
